FAERS Safety Report 14709668 (Version 1)
Quarter: 2018Q2

REPORT INFORMATION
  Report Type: Spontaneous
  Country: CH (occurrence: CH)
  Receive Date: 20180403
  Receipt Date: 20180403
  Transmission Date: 20180711
  Serious: Yes (Hospitalization, Disabling, Other)
  Sender: FDA-Public Use
  Company Number: CH-BAYER-2018-060625

PATIENT
  Age: 26 Year
  Sex: Male

DRUGS (5)
  1. PYRIDOXIN [Concomitant]
     Active Substance: PYRIDOXINE
     Dosage: UNK
     Dates: start: 201405, end: 201502
  2. VENLAFAXINE [Concomitant]
     Active Substance: VENLAFAXINE HYDROCHLORIDE
     Dosage: 1 DF, UNK
     Dates: start: 201404, end: 2015
  3. BETAFERON [Suspect]
     Active Substance: INTERFERON BETA-1B
     Indication: MULTIPLE SCLEROSIS
     Dosage: 250 ?G, QOD
     Route: 058
     Dates: start: 201407, end: 201502
  4. ASPEGIC [Concomitant]
     Active Substance: ASPIRIN DL-LYSINE
     Dosage: 1000 MG, UNK
     Dates: start: 201412, end: 201412
  5. ISONIAZID. [Concomitant]
     Active Substance: ISONIAZID
     Dosage: UNK
     Dates: start: 201405, end: 201502

REACTIONS (2)
  - Muscle spasticity [Recovered/Resolved]
  - Musculoskeletal stiffness [None]

NARRATIVE: CASE EVENT DATE: 201407
